FAERS Safety Report 20396419 (Version 2)
Quarter: 2022Q1

REPORT INFORMATION
  Report Type: Spontaneous
  Country: US (occurrence: US)
  Receive Date: 20220130
  Receipt Date: 20220201
  Transmission Date: 20220423
  Serious: No
  Sender: FDA-Public Use
  Company Number: US-ABBVIE-21K-163-3716323-00

PATIENT

DRUGS (1)
  1. HUMIRA [Suspect]
     Active Substance: ADALIMUMAB
     Indication: Hidradenitis
     Route: 058

REACTIONS (7)
  - Mental disorder [Unknown]
  - Stress [Unknown]
  - Emotional disorder [Unknown]
  - Anxiety [Unknown]
  - Depression [Unknown]
  - Hidradenitis [Not Recovered/Not Resolved]
  - Therapeutic response shortened [Unknown]
